FAERS Safety Report 16672975 (Version 1)
Quarter: 2019Q3

REPORT INFORMATION
  Report Type: Report from Study
  Country: NL (occurrence: NL)
  Receive Date: 20190806
  Receipt Date: 20190806
  Transmission Date: 20191004
  Serious: Yes (Hospitalization)
  Sender: FDA-Public Use
  Company Number: PHHY2019NL181379

PATIENT
  Age: 36 Year
  Sex: Male

DRUGS (1)
  1. ACLASTA [Suspect]
     Active Substance: ZOLEDRONIC ACID
     Indication: OSTEOPOROSIS
     Dosage: 5 MG, Q12MO
     Route: 042
     Dates: start: 20180709

REACTIONS (3)
  - Rotavirus infection [Unknown]
  - Pyrexia [Recovered/Resolved]
  - Salmonellosis [Unknown]

NARRATIVE: CASE EVENT DATE: 20180709
